FAERS Safety Report 25944236 (Version 5)
Quarter: 2025Q4

REPORT INFORMATION
  Report Type: Report from Study
  Country: BR (occurrence: BR)
  Receive Date: 20251021
  Receipt Date: 20251208
  Transmission Date: 20260117
  Serious: Yes (Life-Threatening, Other)
  Sender: NOVARTIS
  Company Number: BR-002147023-NVSC2025BR130655

PATIENT
  Age: 63 Year
  Sex: Female

DRUGS (8)
  1. COSENTYX [Suspect]
     Active Substance: SECUKINUMAB
     Indication: Psoriasis
     Dosage: 300 MG
     Route: 065
     Dates: start: 20250807
  2. COSENTYX [Suspect]
     Active Substance: SECUKINUMAB
     Dosage: UNK
     Route: 065
     Dates: start: 20250814
  3. COSENTYX [Suspect]
     Active Substance: SECUKINUMAB
     Dosage: 1 DOSAGE FORM (150 MG/ML INJECTABLE SOLUTION CONTAINED IN 1 CLEAR GLASS FILLED SYRINGE X 1 ML + 1 AP
     Route: 065
  4. COSENTYX [Suspect]
     Active Substance: SECUKINUMAB
     Dosage: 300 MG
     Route: 058
  5. COSENTYX [Suspect]
     Active Substance: SECUKINUMAB
     Dosage: 1 DOSAGE FORM (150 MG/ML INJECTABLE SOLUTION CONTAINED IN 1 CLEAR GLASS FILLED SYRINGE X 1 ML + 1 AP
     Route: 065
  6. METFORMIN [Suspect]
     Active Substance: METFORMIN HYDROCHLORIDE
     Indication: Diabetes mellitus
     Dosage: UNK
     Route: 065
  7. INSULIN NOS [Suspect]
     Active Substance: INSULIN NOS
     Indication: Diabetes mellitus
     Dosage: UNK
     Route: 065
  8. Tamper [Concomitant]
     Indication: Psoriasis
     Dosage: UNK
     Route: 065

REACTIONS (97)
  - Blood pressure increased [Recovering/Resolving]
  - Psoriasis [Recovering/Resolving]
  - Nail psoriasis [Unknown]
  - Skin discolouration [Recovered/Resolved with Sequelae]
  - Skin haemorrhage [Unknown]
  - Scratch [Recovered/Resolved with Sequelae]
  - Pruritus [Recovered/Resolved with Sequelae]
  - Pruritus [Recovering/Resolving]
  - Scab [Unknown]
  - Skin injury [Unknown]
  - Dry skin [Recovering/Resolving]
  - Skin exfoliation [Recovering/Resolving]
  - Finger deformity [Unknown]
  - Diabetes mellitus inadequate control [Unknown]
  - Concomitant disease aggravated [Unknown]
  - Injection site thrombosis [Recovered/Resolved]
  - Breast injury [Unknown]
  - Injection site abscess [Recovered/Resolved]
  - Injection site pain [Recovered/Resolved]
  - Injection site haematoma [Recovered/Resolved]
  - Injection site pain [Recovered/Resolved]
  - Injection site haematoma [Unknown]
  - Injection site bruising [Recovered/Resolved]
  - Injection site pain [Unknown]
  - Injection site bruising [Recovered/Resolved]
  - Fear [Unknown]
  - Nervousness [Unknown]
  - Asthenia [Recovered/Resolved with Sequelae]
  - Fatigue [Recovered/Resolved]
  - Decreased immune responsiveness [Recovering/Resolving]
  - Depressed mood [Not Recovered/Not Resolved]
  - Loss of therapeutic response [Recovered/Resolved with Sequelae]
  - Decreased immune responsiveness [Recovered/Resolved with Sequelae]
  - Blood pressure fluctuation [Recovered/Resolved with Sequelae]
  - Insomnia [Recovered/Resolved with Sequelae]
  - Dermal cyst [Unknown]
  - Swelling [Unknown]
  - Dyspnoea [Recovered/Resolved with Sequelae]
  - Pain [Recovering/Resolving]
  - Chills [Unknown]
  - Inflammation [Recovered/Resolved with Sequelae]
  - Gait disturbance [Recovered/Resolved with Sequelae]
  - Pain in extremity [Recovered/Resolved with Sequelae]
  - Bone pain [Recovered/Resolved with Sequelae]
  - Constipation [Recovered/Resolved with Sequelae]
  - Blood pressure abnormal [Recovered/Resolved with Sequelae]
  - Abdominal discomfort [Recovered/Resolved with Sequelae]
  - Drug intolerance [Unknown]
  - Renal pain [Recovered/Resolved]
  - Gait disturbance [Recovering/Resolving]
  - Vomiting [Recovering/Resolving]
  - Dyspnoea [Recovered/Resolved]
  - Retching [Recovered/Resolved]
  - Musculoskeletal stiffness [Unknown]
  - Therapeutic product effect decreased [Unknown]
  - Dyschezia [Unknown]
  - Dyspnoea [Unknown]
  - Dizziness [Recovered/Resolved]
  - Insomnia [Unknown]
  - Eructation [Unknown]
  - Skin odour abnormal [Unknown]
  - Neoplasm [Unknown]
  - Dandruff [Unknown]
  - Vision blurred [Recovered/Resolved with Sequelae]
  - Eye pruritus [Unknown]
  - Urinary tract infection [Unknown]
  - Leiomyoma [Unknown]
  - Haemorrhage [Unknown]
  - Fear of surgery [Unknown]
  - Pain in extremity [Unknown]
  - Sleep disorder [Not Recovered/Not Resolved]
  - Musculoskeletal discomfort [Not Recovered/Not Resolved]
  - Inflammation [Unknown]
  - Malaise [Unknown]
  - Urinary incontinence [Unknown]
  - Seborrhoea [Unknown]
  - Fluid retention [Unknown]
  - Parosmia [Unknown]
  - Injection site haemorrhage [Unknown]
  - Limb deformity [Unknown]
  - Asthenia [Recovering/Resolving]
  - Abdominal injury [Unknown]
  - Abdominal pain upper [Unknown]
  - Inadvertent injection air bubble [Unknown]
  - Tremor [Recovering/Resolving]
  - Nervous system disorder [Unknown]
  - Illness [Unknown]
  - Fall [Unknown]
  - Renal disorder [Unknown]
  - Pain of skin [Unknown]
  - Ill-defined disorder [Unknown]
  - Contusion [Unknown]
  - Anxiety [Unknown]
  - Pollakiuria [Unknown]
  - Middle insomnia [Unknown]
  - Myalgia [Unknown]
  - Wrong technique in device usage process [Not Recovered/Not Resolved]

NARRATIVE: CASE EVENT DATE: 20251001
